FAERS Safety Report 24576224 (Version 1)
Quarter: 2024Q4

REPORT INFORMATION
  Report Type: Spontaneous
  Country: ES (occurrence: ES)
  Receive Date: 20241104
  Receipt Date: 20241104
  Transmission Date: 20250114
  Serious: Yes (Other)
  Sender: GLAXOSMITHKLINE
  Company Number: ES-GSK-ES2024EME134078

PATIENT

DRUGS (1)
  1. DOSTARLIMAB [Suspect]
     Active Substance: DOSTARLIMAB
     Indication: Endometrial cancer
     Dosage: UNK UNK, Q6W
     Dates: start: 20240529, end: 202410

REACTIONS (2)
  - Sarcoidosis [Not Recovered/Not Resolved]
  - Granulomatous dermatitis [Not Recovered/Not Resolved]

NARRATIVE: CASE EVENT DATE: 20240911
